FAERS Safety Report 25467348 (Version 1)
Quarter: 2025Q2

REPORT INFORMATION
  Report Type: Spontaneous
  Country: US (occurrence: None)
  Receive Date: 20250621
  Receipt Date: 20250621
  Transmission Date: 20250717
  Serious: No
  Sender: FDA-CTU
  Company Number: None

PATIENT
  Age: 54 Year
  Sex: Female
  Weight: 72 kg

DRUGS (11)
  1. QULIPTA [Suspect]
     Active Substance: ATOGEPANT
     Indication: Migraine
     Dosage: OTHER QUANTITY : 1 TABLET(S);?FREQUENCY : DAILY;?
     Route: 048
     Dates: start: 20250610
  2. DULOXETINE [Concomitant]
     Active Substance: DULOXETINE
  3. BUSPIRONE [Concomitant]
     Active Substance: BUSPIRONE HYDROCHLORIDE
  4. PREGABALIN [Concomitant]
     Active Substance: PREGABALIN
  5. PROPRANOLOL HYDROCHLORIDE [Concomitant]
     Active Substance: PROPRANOLOL HYDROCHLORIDE
  6. OLANZAPINE [Concomitant]
     Active Substance: OLANZAPINE
  7. LORATADINE [Concomitant]
     Active Substance: LORATADINE
  8. LORAZEPAM [Concomitant]
     Active Substance: LORAZEPAM
  9. SUMATRIPTAN [Concomitant]
     Active Substance: SUMATRIPTAN
  10. Uberlvy [Concomitant]
  11. FIORICET [Concomitant]
     Active Substance: ACETAMINOPHEN\BUTALBITAL\CAFFEINE

REACTIONS (7)
  - Anxiety [None]
  - Feeling of despair [None]
  - Fatigue [None]
  - Depression [None]
  - Nausea [None]
  - Decreased appetite [None]
  - Diarrhoea [None]

NARRATIVE: CASE EVENT DATE: 20250610
